FAERS Safety Report 18156584 (Version 3)
Quarter: 2020Q3

REPORT INFORMATION
  Report Type: Spontaneous
  Country: US (occurrence: US)
  Receive Date: 20200817
  Receipt Date: 20200929
  Transmission Date: 20201103
  Serious: No
  Sender: FDA-Public Use
  Company Number: US-PFIZER INC-2020315330

PATIENT
  Age: 66 Year
  Sex: Female

DRUGS (2)
  1. IBRANCE [Suspect]
     Active Substance: PALBOCICLIB
     Dosage: 125 MG
  2. IBRANCE [Suspect]
     Active Substance: PALBOCICLIB
     Indication: BREAST CANCER FEMALE
     Dosage: 100 MG

REACTIONS (5)
  - Dry eye [Not Recovered/Not Resolved]
  - Alopecia [Unknown]
  - Lip dry [Not Recovered/Not Resolved]
  - Constipation [Recovered/Resolved]
  - Musculoskeletal chest pain [Not Recovered/Not Resolved]
